FAERS Safety Report 11592547 (Version 1)
Quarter: 2015Q4

REPORT INFORMATION
  Report Type: Spontaneous
  Country: US (occurrence: US)
  Receive Date: 20151005
  Receipt Date: 20151005
  Transmission Date: 20160304
  Serious: No
  Sender: FDA-Public Use
  Company Number: US-009507513-1510USA000867

PATIENT
  Age: 21 Year
  Sex: Female
  Weight: 82.86 kg

DRUGS (1)
  1. NEXPLANON [Suspect]
     Active Substance: ETONOGESTREL
     Dosage: UNK
     Route: 059
     Dates: start: 20150722

REACTIONS (3)
  - Device kink [Not Recovered/Not Resolved]
  - Implant site inflammation [Unknown]
  - Implant site pain [Unknown]

NARRATIVE: CASE EVENT DATE: 20150916
